FAERS Safety Report 13620780 (Version 2)
Quarter: 2017Q2

REPORT INFORMATION
  Report Type: Spontaneous
  Country: PL (occurrence: PL)
  Receive Date: 20170607
  Receipt Date: 20170607
  Transmission Date: 20170830
  Serious: Yes (Hospitalization)
  Sender: FDA-Public Use
  Company Number: PHHY2017PL079526

PATIENT
  Age: 35 Year
  Sex: Female

DRUGS (1)
  1. EXTAVIA [Suspect]
     Active Substance: INTERFERON BETA-1B
     Indication: PRODUCT USED FOR UNKNOWN INDICATION
     Dosage: UNK
     Route: 058
     Dates: start: 20130322, end: 20161230

REACTIONS (3)
  - Trismus [Recovering/Resolving]
  - Muscle contractions involuntary [Recovering/Resolving]
  - Automatism [Recovering/Resolving]

NARRATIVE: CASE EVENT DATE: 201612
